FAERS Safety Report 14275664 (Version 1)
Quarter: 2017Q4

REPORT INFORMATION
  Report Type: Report from Study
  Country: CN (occurrence: CN)
  Receive Date: 20171212
  Receipt Date: 20171212
  Transmission Date: 20180321
  Serious: Yes (Other)
  Sender: FDA-Public Use
  Company Number: CN-ROCHE-2033241

PATIENT

DRUGS (2)
  1. CAPECITABINE. [Suspect]
     Active Substance: CAPECITABINE
     Indication: GASTRIC CANCER
     Dosage: FROM DAY 1 TO DAY 14, 3 WEEKS FOR 1 CYCLE
     Route: 048
  2. IRINOTECAN [Suspect]
     Active Substance: IRINOTECAN
     Indication: GASTRIC CANCER
     Dosage: ON DAY 1 AND DAY 8
     Route: 041

REACTIONS (9)
  - Renal injury [Unknown]
  - Diarrhoea [Recovering/Resolving]
  - Liver injury [Unknown]
  - Palmar-plantar erythrodysaesthesia syndrome [Unknown]
  - Neutropenia [Recovered/Resolved]
  - Nausea [Unknown]
  - Vomiting [Unknown]
  - Granulocytopenia [Unknown]
  - Alopecia [Unknown]
